FAERS Safety Report 7115297-7 (Version None)
Quarter: 2010Q4

REPORT INFORMATION
  Report Type: 
  Country: None (occurrence: None)
  Receive Date: 20101122
  Receipt Date: 20101116
  Transmission Date: 20110411
  Serious: Yes (Life-Threatening, Hospitalization)
  Sender: FDA-Public Use
  Company Number: US-US-EMD SERONO, INC.-7028250

PATIENT
  Sex: Male

DRUGS (2)
  1. REBIF [Suspect]
     Indication: MULTIPLE SCLEROSIS
     Dates: start: 20100226, end: 20100505
  2. VITAMIN D [Concomitant]

REACTIONS (9)
  - ABASIA [None]
  - BALANCE DISORDER [None]
  - DRUG HYPERSENSITIVITY [None]
  - DYSPHAGIA [None]
  - HAEMATEMESIS [None]
  - INFLUENZA LIKE ILLNESS [None]
  - NAUSEA [None]
  - NUCLEAR MAGNETIC RESONANCE IMAGING ABNORMAL [None]
  - SPEECH DISORDER [None]
